FAERS Safety Report 4800065-9 (Version None)
Quarter: 2005Q4

REPORT INFORMATION
  Report Type: 
  Country: None (occurrence: None)
  Receive Date: 20051013
  Receipt Date: 20051006
  Transmission Date: 20060501
  Serious: Yes (Hospitalization)
  Sender: FDA-Public Use
  Company Number: 2005137377

PATIENT
  Age: 83 Year
  Sex: Female

DRUGS (7)
  1. ATARAX [Suspect]
     Indication: ILL-DEFINED DISORDER
     Dosage: 50 MG (1 IN 1 D), ORAL
     Route: 048
  2. ALDALIX (SPIRONOLACTONE, FUROSEMIDE) [Suspect]
     Indication: HYPERTENSION
     Dosage: (1 IN 1 D), ORAL
     Route: 048
  3. RISPERDAL [Suspect]
     Indication: ABNORMAL BEHAVIOUR
     Dosage: ORAL
     Route: 048
     Dates: start: 20050201, end: 20050812
  4. DAFLON (DIOSMIN) [Suspect]
     Indication: VENOUS INSUFFICIENCY
     Dosage: (500 MG), ORAL
     Route: 048
     Dates: end: 20050812
  5. PRIMIDONE [Suspect]
     Indication: TREMOR
     Dosage: (250 MG, 3 IN 1 D), ORAL
     Route: 048
     Dates: start: 20050201, end: 20050811
  6. ACETAMINOPHEN W/ PROPOXYPHENE HCL [Suspect]
     Indication: CHONDROCALCINOSIS
     Dosage: ORAL
     Route: 048
     Dates: end: 20050812
  7. BISOPROLOL FUMARATE [Concomitant]

REACTIONS (7)
  - ABNORMAL BEHAVIOUR [None]
  - FALL [None]
  - FOLATE DEFICIENCY [None]
  - HAND FRACTURE [None]
  - NORMOCHROMIC NORMOCYTIC ANAEMIA [None]
  - PANCYTOPENIA [None]
  - TREMOR [None]
